FAERS Safety Report 8260847 (Version 4)
Quarter: 2012Q4

REPORT INFORMATION
  Report Type: 
  Country: US (occurrence: US)
  Receive Date: 20111123
  Receipt Date: 20121207
  Transmission Date: 20130627
  Serious: Yes (Congenital Anomaly)
  Sender: FDA-Public Use
  Company Number: US-JNJFOC-20111107338

PATIENT
  Sex: Male

DRUGS (6)
  1. TOPAMAX [Suspect]
     Indication: FOETAL EXPOSURE DURING PREGNANCY
     Route: 064
     Dates: start: 20060610
  2. KEPPRA [Suspect]
     Indication: FOETAL EXPOSURE DURING PREGNANCY
     Route: 064
  3. AZITHROMYCIN [Concomitant]
     Indication: FOETAL EXPOSURE DURING PREGNANCY
     Route: 064
  4. NEOMYCIN [Concomitant]
     Indication: FOETAL EXPOSURE DURING PREGNANCY
     Route: 064
  5. POLYMYXIN [Concomitant]
     Indication: FOETAL EXPOSURE DURING PREGNANCY
     Route: 064
  6. PRENATAL MULTIPLE VITAMIN [Concomitant]
     Indication: FOETAL EXPOSURE DURING PREGNANCY
     Route: 064

REACTIONS (2)
  - Ventricular septal defect [Unknown]
  - Hypospadias [Unknown]
